FAERS Safety Report 24218652 (Version 1)
Quarter: 2024Q3

REPORT INFORMATION
  Report Type: Spontaneous
  Country: US (occurrence: US)
  Receive Date: 20240816
  Receipt Date: 20240816
  Transmission Date: 20241016
  Serious: No
  Sender: SANOFI AVENTIS
  Company Number: US-SA-SAC20240812001002

PATIENT
  Sex: Male
  Weight: 85.72 kg

DRUGS (1)
  1. DUPIXENT [Suspect]
     Active Substance: DUPILUMAB
     Indication: Asthma
     Dosage: 600 MG, 1X
     Route: 058

REACTIONS (4)
  - Drug hypersensitivity [Unknown]
  - Swelling face [Unknown]
  - Erythema [Unknown]
  - Respiratory disorder [Unknown]
